FAERS Safety Report 9238826 (Version 1)
Quarter: 2013Q2

REPORT INFORMATION
  Report Type: Spontaneous
  Country: US (occurrence: None)
  Receive Date: 20130417
  Receipt Date: 20130417
  Transmission Date: 20140414
  Serious: Yes (Hospitalization)
  Sender: FDA-Public Use
  Company Number: None

PATIENT
  Age: 68 Year
  Sex: Male
  Weight: 68.2 kg

DRUGS (10)
  1. TADALAFIL [Suspect]
     Indication: SQUAMOUS CELL CARCINOMA OF THE ORAL CAVITY
     Route: 048
     Dates: start: 20130312, end: 20130331
  2. TADALAFIL [Suspect]
     Indication: SQUAMOUS CELL CARCINOMA OF THE ORAL CAVITY
     Route: 048
     Dates: start: 20130312, end: 20130331
  3. KLONOPIN [Concomitant]
  4. JALYN [Concomitant]
  5. LOPRESSOR [Concomitant]
  6. MORPHINE [Concomitant]
  7. PRAVACHOL [Concomitant]
  8. VANCOMYCIN [Concomitant]
  9. FLAGYL [Concomitant]
  10. CLINDAMYCIN [Concomitant]

REACTIONS (3)
  - Abscess neck [None]
  - Cellulitis [None]
  - Fistula [None]
